FAERS Safety Report 22091563 (Version 2)
Quarter: 2023Q1

REPORT INFORMATION
  Report Type: Report from Study
  Country: US (occurrence: US)
  Receive Date: 20230314
  Receipt Date: 20230327
  Transmission Date: 20230417
  Serious: Yes (Other)
  Sender: FDA-Public Use
  Company Number: US-ABBVIE-4338260

PATIENT
  Age: 55 Year
  Sex: Male

DRUGS (1)
  1. RINVOQ [Suspect]
     Active Substance: UPADACITINIB
     Indication: Rheumatoid arthritis
     Dosage: FORM STRENGTH: 15 MG
     Route: 048
     Dates: start: 202206

REACTIONS (10)
  - Dizziness [Unknown]
  - Blood creatinine increased [Recovering/Resolving]
  - Hyperhidrosis [Unknown]
  - Abdominal pain [Unknown]
  - Hernia [Recovering/Resolving]
  - Pain in extremity [Unknown]
  - Dehydration [Unknown]
  - Skin discolouration [Unknown]
  - Abdominal hernia [Unknown]
  - Weight decreased [Unknown]

NARRATIVE: CASE EVENT DATE: 20220101
